FAERS Safety Report 7807906-1 (Version None)
Quarter: 2011Q4

REPORT INFORMATION
  Report Type: 
  Country: None (occurrence: None)
  Receive Date: 20111011
  Receipt Date: 20111006
  Transmission Date: 20120403
  Serious: Yes (Death, Other)
  Sender: FDA-Public Use
  Company Number: US-CELGENEUS-163-21880-11100912

PATIENT
  Age: 87 Year
  Sex: Female

DRUGS (10)
  1. GABAPENTIN [Concomitant]
     Route: 065
  2. PHENOBARBITAL TAB [Concomitant]
     Route: 065
  3. HYDROMORPHONE HCL [Concomitant]
     Route: 065
  4. REVLIMID [Suspect]
     Dosage: 5 MILLIGRAM
     Route: 048
     Dates: start: 20110301
  5. INDOMETHACIN [Concomitant]
     Route: 065
  6. ONDANSETRON [Concomitant]
     Route: 065
  7. PREDNISONE [Concomitant]
     Indication: MULTIPLE MYELOMA
     Route: 065
     Dates: start: 20110101
  8. HALOPERIDOL [Concomitant]
     Route: 065
  9. REVLIMID [Suspect]
     Indication: MULTIPLE MYELOMA
     Dosage: 15 MILLIGRAM
     Route: 048
     Dates: start: 20110201, end: 20110401
  10. MELPHALAN HYDROCHLORIDE [Concomitant]
     Indication: MULTIPLE MYELOMA
     Route: 065
     Dates: start: 20110101

REACTIONS (5)
  - FULL BLOOD COUNT DECREASED [None]
  - DEATH [None]
  - DISEASE PROGRESSION [None]
  - HYPERCALCAEMIA [None]
  - CONFUSIONAL STATE [None]
